FAERS Safety Report 7747693-9 (Version None)
Quarter: 2011Q3

REPORT INFORMATION
  Report Type: 
  Country: None (occurrence: None)
  Receive Date: 20110913
  Receipt Date: 20110907
  Transmission Date: 20111222
  Serious: Yes (Life-Threatening, Hospitalization)
  Sender: FDA-Public Use
  Company Number: IN-ELI_LILLY_AND_COMPANY-IN201109002543

PATIENT
  Sex: Male

DRUGS (1)
  1. HUMULIN R [Suspect]
     Indication: DIABETES MELLITUS
     Route: 058

REACTIONS (4)
  - MECHANICAL VENTILATION [None]
  - BLOOD GLUCOSE INCREASED [None]
  - RENAL FAILURE CHRONIC [None]
  - DRUG INEFFECTIVE [None]
